FAERS Safety Report 7381413-5 (Version None)
Quarter: 2011Q1

REPORT INFORMATION
  Report Type: 
  Country: None (occurrence: None)
  Receive Date: 20110321
  Receipt Date: 20110307
  Transmission Date: 20110831
  Serious: Yes (Death, Other)
  Sender: FDA-Public Use
  Company Number: JP-ACCORD-008452

PATIENT
  Sex: Female

DRUGS (5)
  1. BEVACIZUMAB (BEVACIZUMAB) [Suspect]
     Indication: COLON CANCER
  2. LEUCOVORIN (LEUCOVORIN) [Concomitant]
  3. IRINOTECAN HCL [Suspect]
     Indication: COLON CANCER
  4. FLUOROURACIL [Suspect]
     Indication: COLON CANCER
  5. OXALIPLATIN [Suspect]
     Indication: COLON CANCER

REACTIONS (4)
  - NEOPLASM MALIGNANT [None]
  - COLON CANCER [None]
  - RESPIRATORY FAILURE [None]
  - PYREXIA [None]
